FAERS Safety Report 17794427 (Version 1)
Quarter: 2020Q2

REPORT INFORMATION
  Report Type: Spontaneous
  Country: HR (occurrence: HR)
  Receive Date: 20200515
  Receipt Date: 20200515
  Transmission Date: 20200714
  Serious: Yes (Other)
  Sender: FDA-Public Use
  Company Number: HR-B.I. PHARMACEUTICALS,INC./RIDGEFIELD-2020-BI-023661

PATIENT
  Age: 70 Year
  Sex: Male

DRUGS (3)
  1. GILOTRIF [Suspect]
     Active Substance: AFATINIB
     Indication: NON-SMALL CELL LUNG CANCER
     Route: 065
  2. GILOTRIF [Suspect]
     Active Substance: AFATINIB
     Indication: EGFR GENE MUTATION
  3. OSIMERTINIB. [Concomitant]
     Active Substance: OSIMERTINIB
     Indication: DRUG THERAPY
     Route: 065

REACTIONS (5)
  - Neoplasm progression [Unknown]
  - Osteolysis [Unknown]
  - Skin lesion [Unknown]
  - Lymphangiosis carcinomatosa [Unknown]
  - Lymphadenopathy [Unknown]
